FAERS Safety Report 7552409-5 (Version None)
Quarter: 2011Q2

REPORT INFORMATION
  Report Type: 
  Country: None (occurrence: None)
  Receive Date: 20110616
  Receipt Date: 20110607
  Transmission Date: 20111010
  Serious: Yes (Hospitalization, Other)
  Sender: FDA-Public Use
  Company Number: US-ASTRAZENECA-2011SE35141

PATIENT
  Age: 62 Year
  Sex: Female

DRUGS (1)
  1. NEXIUM [Suspect]
     Route: 048

REACTIONS (4)
  - BRAIN OPERATION [None]
  - INTRACRANIAL ANEURYSM [None]
  - CEREBROVASCULAR ACCIDENT [None]
  - STAPHYLOCOCCAL INFECTION [None]
